FAERS Safety Report 8048121-9 (Version None)
Quarter: 2011Q4

REPORT INFORMATION
  Report Type: 
  Country: None (occurrence: None)
  Receive Date: 20111209
  Receipt Date: 20111102
  Transmission Date: 20120403
  Serious: No
  Sender: FDA-Public Use
  Company Number: 2011SP051676

PATIENT
  Age: 48 Year
  Sex: Female

DRUGS (10)
  1. PEGASYS [Suspect]
     Indication: PRODUCT USED FOR UNKNOWN INDICATION
  2. TRAMADOL HCL [Concomitant]
  3. GLUCOSAMINE [Concomitant]
  4. ACIDOPHILUS [Concomitant]
  5. PREVACID [Concomitant]
  6. MULTI-VITAMIN [Concomitant]
  7. RIBAVIRIN [Suspect]
     Indication: PRODUCT USED FOR UNKNOWN INDICATION
  8. CHONDROITIN [Concomitant]
  9. VICTRELIS [Suspect]
     Indication: HEPATITIS C
     Dosage: 800 MG;TID; PO
     Route: 048
     Dates: start: 20111001
  10. NIACIN [Concomitant]

REACTIONS (2)
  - VISUAL IMPAIRMENT [None]
  - HEADACHE [None]
